FAERS Safety Report 4361273-7 (Version None)
Quarter: 2004Q2

REPORT INFORMATION
  Report Type: 
  Country: None (occurrence: None)
  Receive Date: 20040520
  Receipt Date: 20040519
  Transmission Date: 20050107
  Serious: Yes (Other)
  Sender: FDA-Public Use
  Company Number: US-GLAXOSMITHKLINE-A0511479A

PATIENT
  Age: 5 Year
  Sex: Male

DRUGS (4)
  1. ADVAIR DISKUS 100/50 [Suspect]
     Indication: ASTHMA
     Dosage: 1PUFF TWICE PER DAY
     Route: 055
     Dates: start: 20031101, end: 20040519
  2. ALBUTEROL [Concomitant]
  3. RHINOCORT [Concomitant]
  4. SINGULAIR [Concomitant]

REACTIONS (2)
  - HALLUCINATION, VISUAL [None]
  - VISUAL DISTURBANCE [None]
